FAERS Safety Report 19421915 (Version 2)
Quarter: 2021Q4

REPORT INFORMATION
  Report Type: Other
  Country: None (occurrence: US)
  Receive Date: 20210616
  Receipt Date: 20211101
  Transmission Date: 20220303
  Serious: Yes (Hospitalization, Other)
  Sender: FDA-Public Use
  Company Number: US-NATCO PHARMA LIMITED-2112787

PATIENT
  Age: 49 Year
  Sex: Male
  Weight: 81.8 kg

DRUGS (15)
  1. ONDANSETRON HYDROCHLORIDE [Suspect]
     Active Substance: ONDANSETRON HYDROCHLORIDE
     Indication: Nausea
     Route: 065
  2. ONDANSETRON HYDROCHLORIDE [Suspect]
     Active Substance: ONDANSETRON HYDROCHLORIDE
     Indication: Vomiting
  3. DOFETILIDE [Suspect]
     Active Substance: DOFETILIDE
  4. DILTIAZEM [Interacting]
     Active Substance: DILTIAZEM
  5. FUROSEMIDE [Interacting]
     Active Substance: FUROSEMIDE
  6. FAMOTIDINE [Interacting]
     Active Substance: FAMOTIDINE
     Route: 042
  7. IBUPROFEN [Concomitant]
     Active Substance: IBUPROFEN
     Route: 065
  8. FOLIC ACID [Concomitant]
     Active Substance: FOLIC ACID
     Route: 065
  9. ROSUVASTATIN [Concomitant]
     Active Substance: ROSUVASTATIN
     Route: 065
  10. LORAZEPAM [Concomitant]
     Active Substance: LORAZEPAM
     Route: 042
  11. SENNA LEAF [Concomitant]
     Active Substance: SENNA LEAF
     Route: 065
  12. PRADAXA [Concomitant]
     Active Substance: DABIGATRAN ETEXILATE MESYLATE
  13. EPINEPHRINE [Concomitant]
     Active Substance: EPINEPHRINE
     Route: 042
  14. LIDOCAINE [Concomitant]
     Active Substance: LIDOCAINE
     Route: 042
  15. AMIODARONE HYDROCHLORIDE [Concomitant]
     Active Substance: AMIODARONE HYDROCHLORIDE

REACTIONS (1)
  - Electrocardiogram QT prolonged [Recovered/Resolved]
